FAERS Safety Report 8745688 (Version 2)
Quarter: 2012Q4

REPORT INFORMATION
  Report Type: 
  Country: US (occurrence: US)
  Receive Date: 20120827
  Receipt Date: 20120914
  Transmission Date: 20130627
  Serious: No
  Sender: FDA-Public Use
  Company Number: US-009507513-1208USA004180

PATIENT

DRUGS (2)
  1. REMERON [Suspect]
     Indication: SLEEP DISORDER
     Dosage: 15 mg, UNK
     Route: 048
     Dates: start: 199708
  2. REMERON SOLTAB [Suspect]
     Indication: SLEEP DISORDER
     Dosage: 15 mg, UNK
     Dates: start: 199708

REACTIONS (4)
  - Hypoaesthesia oral [Unknown]
  - Insomnia [Not Recovered/Not Resolved]
  - Off label use [Unknown]
  - Drug ineffective [Unknown]
